FAERS Safety Report 20964031 (Version 1)
Quarter: 2022Q2

REPORT INFORMATION
  Report Type: Spontaneous
  Country: GR (occurrence: GR)
  Receive Date: 20220615
  Receipt Date: 20220615
  Transmission Date: 20220720
  Serious: Yes (Other)
  Sender: FDA-Public Use
  Company Number: GR-PFIZER INC-202200812731

PATIENT
  Age: 69 Year
  Sex: Female

DRUGS (3)
  1. METHYLPREDNISOLONE [Suspect]
     Active Substance: METHYLPREDNISOLONE
     Indication: Pulmonary haemorrhage
     Dosage: 40 MG, DAILY
     Route: 048
  2. METHYLPREDNISOLONE SODIUM SUCCINATE [Suspect]
     Active Substance: METHYLPREDNISOLONE SODIUM SUCCINATE
     Indication: Pulmonary haemorrhage
     Dosage: 500 MG, DAILY (FOR 3 DAYS)
     Route: 042
  3. CYCLOPHOSPHAMIDE [Suspect]
     Active Substance: CYCLOPHOSPHAMIDE
     Indication: Pulmonary haemorrhage
     Dosage: 500 MG/M2 BODY SURFACE AREA, MONTHLY (TWO IN TOTAL)
     Route: 042

REACTIONS (5)
  - Therapeutic product effect incomplete [Unknown]
  - Lumbar vertebral fracture [Unknown]
  - Stomatitis [Unknown]
  - Herpes simplex [Unknown]
  - Osteopenia [Unknown]
